FAERS Safety Report 8854000 (Version 1)
Quarter: 2012Q4

REPORT INFORMATION
  Report Type: Spontaneous
  Country: US (occurrence: None)
  Receive Date: 20121019
  Receipt Date: 20121019
  Transmission Date: 20130627
  Serious: Yes (Other)
  Sender: FDA-Public Use
  Company Number: None

PATIENT
  Age: 56 Year
  Sex: Female
  Weight: 51.71 kg

DRUGS (3)
  1. CRESTOR [Suspect]
     Indication: LDL INCREASED
     Dates: start: 2007, end: 2012
  2. FIORINAL [Concomitant]
  3. FIORCEF [Concomitant]

REACTIONS (2)
  - Body temperature increased [None]
  - Pain [None]
